FAERS Safety Report 19492644 (Version 1)
Quarter: 2021Q3

REPORT INFORMATION
  Report Type: Other
  Country: US (occurrence: US)
  Receive Date: 20210705
  Receipt Date: 20210705
  Transmission Date: 20211014
  Serious: Yes (Hospitalization)
  Sender: FDA-Public Use
  Company Number: US-ROCHE-2860985

PATIENT
  Sex: Male

DRUGS (1)
  1. COTELLIC [Suspect]
     Active Substance: COBIMETINIB
     Indication: PAPILLARY THYROID CANCER
     Dosage: TAKE 3 TABLET(S) BY MOUTH DAILY FOR 21 DAY(S) FOLL
     Route: 048

REACTIONS (3)
  - Off label use [Unknown]
  - Hypersensitivity [Unknown]
  - Rash [Unknown]
